FAERS Safety Report 9700910 (Version 1)
Quarter: 2013Q4

REPORT INFORMATION
  Report Type: Spontaneous
  Country: US (occurrence: None)
  Receive Date: 20131120
  Receipt Date: 20131120
  Transmission Date: 20140711
  Serious: Yes (Disabling, Other)
  Sender: FDA-Public Use
  Company Number: None

PATIENT
  Age: 41 Year
  Sex: Female

DRUGS (1)
  1. EMEND [Suspect]
     Indication: NAUSEA
     Dosage: INTO A VEIN
     Route: 042
     Dates: start: 20130107, end: 20130225

REACTIONS (7)
  - Dizziness [None]
  - Rash [None]
  - Rash pruritic [None]
  - Burning sensation [None]
  - Palpitations [None]
  - Dyspnoea [None]
  - Nausea [None]
